FAERS Safety Report 6129666-5 (Version None)
Quarter: 2009Q1

REPORT INFORMATION
  Report Type: 
  Country: None (occurrence: None)
  Receive Date: 20090324
  Receipt Date: 20090313
  Transmission Date: 20090719
  Serious: Yes (Other)
  Sender: FDA-Public Use
  Company Number: DE-ELI_LILLY_AND_COMPANY-DE200903003576

PATIENT
  Sex: Female

DRUGS (7)
  1. CYMBALTA [Suspect]
     Indication: PAIN
     Dosage: 60 MG, DAILY (1/D)
     Route: 048
     Dates: start: 20080310, end: 20080701
  2. CYMBALTA [Suspect]
     Dosage: 60 MG, DAILY (1/D)
     Route: 048
     Dates: start: 20080901, end: 20081001
  3. VALORAN [Concomitant]
  4. LYRICA [Concomitant]
  5. KATADOLON [Concomitant]
  6. CORTISON [Concomitant]
  7. NSAID'S [Concomitant]

REACTIONS (3)
  - BLOOD CHOLESTEROL INCREASED [None]
  - INTERVERTEBRAL DISC PROTRUSION [None]
  - LIVER FUNCTION TEST ABNORMAL [None]
